FAERS Safety Report 17164624 (Version 1)
Quarter: 2019Q4

REPORT INFORMATION
  Report Type: Spontaneous
  Country: US (occurrence: US)
  Receive Date: 20191217
  Receipt Date: 20191217
  Transmission Date: 20200122
  Serious: No
  Sender: FDA-Public Use
  Company Number: US-PFIZER INC-2019537893

PATIENT
  Age: 11 Year
  Sex: Male
  Weight: 29.3 kg

DRUGS (1)
  1. GENOTROPIN [Suspect]
     Active Substance: SOMATROPIN
     Indication: GROWTH DISORDER
     Dosage: 1.3 MG, (UNDER SKIN DAILY STOMACH, RIGHT THIGH, LEFT THIGH, ARMS  )
     Route: 058
     Dates: start: 20191126

REACTIONS (3)
  - Device issue [Recovered/Resolved]
  - Injection site pain [Recovered/Resolved]
  - Wrong technique in device usage process [Recovered/Resolved]

NARRATIVE: CASE EVENT DATE: 20191201
